FAERS Safety Report 4880315-3 (Version None)
Quarter: 2006Q1

REPORT INFORMATION
  Report Type: 
  Country: None (occurrence: None)
  Receive Date: 20060113
  Receipt Date: 20051208
  Transmission Date: 20060701
  Serious: Yes (Other)
  Sender: FDA-Public Use
  Company Number: US-ROCHE-428687

PATIENT
  Age: 63 Year
  Sex: Female
  Weight: 67.1 kg

DRUGS (2)
  1. BONIVA [Suspect]
     Indication: OSTEOPOROSIS
     Route: 048
     Dates: start: 20051203, end: 20051203
  2. UNSPECIFIED DRUGS [Concomitant]
     Dosage: IT WAS REPORTED THAT THE PATIENT RECEIVED OTHER MEDICATIONS, BUT THEY ARE MEDICATIONS THAT THE PATI+

REACTIONS (7)
  - ARTHRITIS [None]
  - FATIGUE [None]
  - JOINT EFFUSION [None]
  - JOINT SWELLING [None]
  - OEDEMA PERIPHERAL [None]
  - PAIN IN EXTREMITY [None]
  - PYREXIA [None]
